FAERS Safety Report 23974097 (Version 4)
Quarter: 2024Q3

REPORT INFORMATION
  Report Type: Report from Study
  Country: GR (occurrence: GR)
  Receive Date: 20240614
  Receipt Date: 20240723
  Transmission Date: 20241016
  Serious: Yes (Hospitalization)
  Sender: ABBVIE
  Company Number: GR-ABBVIE-5796421

PATIENT
  Age: 74 Year
  Sex: Male
  Weight: 69 kg

DRUGS (10)
  1. CARBIDOPA\LEVODOPA [Suspect]
     Active Substance: CARBIDOPA\LEVODOPA
     Indication: Parkinson^s disease
     Dosage: MORNING DOSE: 10.7ML; CONTINUOUS RATE: 2.2ML/H; EXTRA DOSE: 1.0ML?LAST ADMIN DATE: 2024
     Route: 050
     Dates: start: 20240514
  2. CARBIDOPA\LEVODOPA [Suspect]
     Active Substance: CARBIDOPA\LEVODOPA
     Dosage: MORNING DOSE: 10.7ML; CONTINUOUS RATE: 2.2ML/H; EXTRA DOSE: 1.0ML
     Route: 050
  3. CARBIDOPA\LEVODOPA [Suspect]
     Active Substance: CARBIDOPA\LEVODOPA
     Dosage: MORNING DOSE: 10.7ML(NOT ADMINISTRATED); CONTINUOUS RATE: UNKNOWN; EXTRA DOSE: 1.0ML
     Route: 050
  4. CARBIDOPA\LEVODOPA [Suspect]
     Active Substance: CARBIDOPA\LEVODOPA
     Dosage: MORNING DOSE: 10.7ML(NOT ADMINISTRATED); CONTINUOUS RATE: 1.7ML/H; EXTRA DOSE: 1.0ML
     Route: 050
  5. CARBIDOPA\LEVODOPA [Suspect]
     Active Substance: CARBIDOPA\LEVODOPA
     Dosage: MORNING DOSE: 10.7ML(NOT ADMINISTRATED); CONTINUOUS RATE: 1.7ML/H; EXTRA DOSE: 1.0ML
     Route: 050
  6. CARBIDOPA\LEVODOPA [Suspect]
     Active Substance: CARBIDOPA\LEVODOPA
     Dosage: MORNING DOSE: 10.7ML; CONTINUOUS RATE: 2.2ML/H; EXTRA DOSE: 1.0ML
     Route: 050
     Dates: end: 20240605
  7. CARBIDOPA\LEVODOPA [Suspect]
     Active Substance: CARBIDOPA\LEVODOPA
     Dosage: MORNING DOSE: 5.0ML; CONTINUOUS RATE: 1.8ML/H; EXTRA DOSE: 1.0ML
     Route: 050
  8. DIAZEPAM [Concomitant]
     Active Substance: DIAZEPAM
     Indication: Product used for unknown indication
     Dates: start: 20240605
  9. ROCEPHIN [Concomitant]
     Active Substance: CEFTRIAXONE SODIUM
     Indication: Renal impairment
     Route: 042
  10. AKINETON [Concomitant]
     Active Substance: BIPERIDEN HYDROCHLORIDE
     Indication: Product used for unknown indication
     Dates: start: 20240605

REACTIONS (13)
  - Pain in extremity [Not Recovered/Not Resolved]
  - Renal impairment [Recovered/Resolved]
  - Overdose [Recovered/Resolved]
  - Muscle spasms [Not Recovered/Not Resolved]
  - Gait disturbance [Unknown]
  - Therapeutic product effect incomplete [Not Recovered/Not Resolved]
  - Dyskinesia [Not Recovered/Not Resolved]
  - Pneumonia aspiration [Recovered/Resolved]
  - Dysstasia [Not Recovered/Not Resolved]
  - Dyskinesia [Unknown]
  - Dystonia [Unknown]
  - Pyrexia [Recovered/Resolved]
  - C-reactive protein increased [Recovered/Resolved]

NARRATIVE: CASE EVENT DATE: 20240531
